FAERS Safety Report 23320953 (Version 2)
Quarter: 2024Q1

REPORT INFORMATION
  Report Type: Report from Study
  Country: US (occurrence: US)
  Receive Date: 20231220
  Receipt Date: 20240220
  Transmission Date: 20240410
  Serious: Yes (Hospitalization, Other)
  Sender: FDA-Public Use
  Company Number: US-BAYER-2023A179612

PATIENT
  Age: 63 Year
  Sex: Male

DRUGS (15)
  1. NUBEQA [Suspect]
     Active Substance: DAROLUTAMIDE
     Indication: Hormone-refractory prostate cancer
     Dosage: 600 MG, BID
     Route: 048
     Dates: start: 20220924
  2. IMODIUM [Concomitant]
     Active Substance: LOPERAMIDE HYDROCHLORIDE
     Dosage: 12MG CAPSULE DAILY
  3. MAGNESIUM [Concomitant]
     Active Substance: MAGNESIUM
     Dosage: 1 200MG TABLET DAILY
  4. ACETAMINOPHEN [Concomitant]
     Active Substance: ACETAMINOPHEN
     Dosage: 325MG TABLETS TWICE DAILY
  5. TOUJEO MAX [Concomitant]
     Active Substance: INSULIN GLARGINE
     Dosage: 50 UNITS EVERY NIGHT
  6. LUPRON [Concomitant]
     Active Substance: LEUPROLIDE ACETATE
     Dosage: 11.25 MG EVERY 3 MONTHS
  7. GABAPENTIN [Concomitant]
     Active Substance: GABAPENTIN
     Dosage: 100MG CAPSULE TWICE DAILY
  8. CALTRATE 600+D PLUS [Concomitant]
     Dosage: 2 TABLETS DAILY
  9. COLESEVELAM [Concomitant]
     Active Substance: COLESEVELAM
     Dosage: 10 MG DAILY
  10. NOVOLIN 70/30 [Concomitant]
     Active Substance: INSULIN HUMAN
     Dosage: 1 PEN THREE TIMES DAILY
  11. ENALAPRIL MALEATE [Concomitant]
     Active Substance: ENALAPRIL MALEATE
     Dosage: UNK
  12. IBUPROFEN [Concomitant]
     Active Substance: IBUPROFEN
     Dosage: UNK
  13. FAMOTIDINE [Concomitant]
     Active Substance: FAMOTIDINE
     Dosage: 40 MG DAILY
  14. VITAMIN D3 [Concomitant]
     Active Substance: CHOLECALCIFEROL
     Dosage: 1 TABLET DAILY
  15. CRESTOR [Suspect]
     Active Substance: ROSUVASTATIN CALCIUM

REACTIONS (8)
  - Dyspnoea [Recovering/Resolving]
  - Cardiac disorder [None]
  - Diarrhoea [None]
  - Gait disturbance [None]
  - Coronary arterial stent insertion [Not Recovered/Not Resolved]
  - Arterial stenosis [Not Recovered/Not Resolved]
  - Coronary vein stenosis [Not Recovered/Not Resolved]
  - Diplegia [Not Recovered/Not Resolved]

NARRATIVE: CASE EVENT DATE: 20231201
